FAERS Safety Report 7342150-6 (Version None)
Quarter: 2011Q1

REPORT INFORMATION
  Report Type: 
  Country: None (occurrence: None)
  Receive Date: 20110309
  Receipt Date: 20110303
  Transmission Date: 20110831
  Serious: Yes (Other)
  Sender: FDA-Public Use
  Company Number: US-MERCK-1103USA00993

PATIENT
  Sex: Female

DRUGS (3)
  1. FOSAMAX [Suspect]
     Route: 048
     Dates: start: 20080101
  2. ALENDRONATE SODIUM [Suspect]
     Route: 065
     Dates: start: 20080101
  3. FOSAMAX [Suspect]
     Route: 048
     Dates: start: 20080101

REACTIONS (1)
  - FRACTURE [None]
